FAERS Safety Report 4817660-3 (Version None)
Quarter: 2005Q3

REPORT INFORMATION
  Report Type: 
  Country: None (occurrence: None)
  Receive Date: 20050929
  Receipt Date: 20050610
  Transmission Date: 20060218
  Serious: No
  Sender: FDA-Public Use
  Company Number: 05P-163-0302860-00

PATIENT
  Age: 58 Year
  Sex: Female
  Weight: 46.2669 kg

DRUGS (10)
  1. HUMIRA [Suspect]
     Indication: RHEUMATOID ARTHRITIS
     Dosage: 40 MG, 1 IN 2 WK, SUBCUTANEOUS
     Route: 058
     Dates: start: 20041109
  2. PREDNSONE [Concomitant]
  3. LEFLUNOMIDE [Concomitant]
  4. PEDIACARE COUGH-COLD [Concomitant]
  5. OMEPRAZOLE [Concomitant]
  6. RISEDRONATE SODIUM [Concomitant]
  7. CALCIUM GLUCONATE [Concomitant]
  8. CALCIUM CARBONATE [Concomitant]
  9. ERGOCALCIFEROL [Concomitant]
  10. EPOGEN [Concomitant]

REACTIONS (2)
  - ASTHENIA [None]
  - PAIN IN EXTREMITY [None]
